FAERS Safety Report 5384709-1 (Version None)
Quarter: 2007Q3

REPORT INFORMATION
  Report Type: 
  Country: None (occurrence: None)
  Receive Date: 20070711
  Receipt Date: 20070701
  Transmission Date: 20080115
  Serious: Yes (Other)
  Sender: FDA-Public Use
  Company Number: US-PFIZER INC-2007053699

PATIENT
  Sex: Female
  Weight: 65 kg

DRUGS (20)
  1. LIPITOR [Suspect]
  2. CHANTIX [Suspect]
     Indication: SMOKING CESSATION THERAPY
  3. AMLODIPINE [Suspect]
  4. RISPERDAL [Concomitant]
     Indication: BIPOLAR I DISORDER
  5. LOXAPINE [Concomitant]
     Indication: BIPOLAR I DISORDER
  6. VALPROIC ACID [Concomitant]
     Indication: BIPOLAR I DISORDER
  7. DIPHENHYDRAMINE HCL [Concomitant]
  8. ENALAPRIL MALEATE [Concomitant]
  9. METFORMIN HCL [Concomitant]
     Indication: DIABETES MELLITUS
  10. GLYBURIDE [Concomitant]
  11. HALOPERIDOL [Concomitant]
     Indication: BIPOLAR I DISORDER
     Dosage: DAILY DOSE:5MG
  12. TIMOLOL MALEATE [Concomitant]
  13. MULTIVITAMIN [Concomitant]
  14. VITAMIN B-12 [Concomitant]
  15. OMEGA [Concomitant]
  16. GINKGO BILOBA [Concomitant]
  17. TPN [Concomitant]
  18. PRENATAL [Concomitant]
  19. DEPAKOTE [Concomitant]
  20. ZOLPIDEM TARTRATE [Concomitant]

REACTIONS (10)
  - AGGRESSION [None]
  - AMNESIA [None]
  - CEREBROVASCULAR ACCIDENT [None]
  - FLATULENCE [None]
  - HEADACHE [None]
  - IRRITABILITY [None]
  - NAUSEA [None]
  - NERVOUSNESS [None]
  - SUICIDAL IDEATION [None]
  - VOMITING [None]
